FAERS Safety Report 20500309 (Version 1)
Quarter: 2022Q1

REPORT INFORMATION
  Report Type: Other
  Country: US (occurrence: None)
  Receive Date: 20220222
  Receipt Date: 20220222
  Transmission Date: 20220423
  Serious: Yes (Hospitalization)
  Sender: FDA-Public Use
  Company Number: US-ROCHE-3024808

PATIENT
  Age: 29 Year
  Sex: Female

DRUGS (4)
  1. CAPECITABINE [Suspect]
     Active Substance: CAPECITABINE
     Indication: Colorectal cancer
     Dosage: FOR 5 DAYS PER WEEK.
     Route: 065
  2. FLUOROURACIL [Concomitant]
     Active Substance: FLUOROURACIL
  3. OXALIPLATIN [Concomitant]
     Active Substance: OXALIPLATIN
  4. LEUCOVORIN [Concomitant]
     Active Substance: LEUCOVORIN

REACTIONS (2)
  - Disease progression [Unknown]
  - Drug ineffective [Unknown]
